FAERS Safety Report 15581190 (Version 1)
Quarter: 2018Q4

REPORT INFORMATION
  Report Type: Spontaneous
  Country: US (occurrence: US)
  Receive Date: 20181105
  Receipt Date: 20181105
  Transmission Date: 20190205
  Serious: No
  Sender: FDA-Public Use
  Company Number: US-UNICHEM PHARMACEUTICALS (USA) INC-UCM201803-000058

PATIENT
  Age: 15 Year
  Sex: Female

DRUGS (4)
  1. LAMOTRIGINE 25 MG TABLETS [Suspect]
     Active Substance: LAMOTRIGINE
     Dosage: 1 TABLET
  2. LAMOTRIGINE 25 MG TABLETS [Suspect]
     Active Substance: LAMOTRIGINE
     Dosage: 2 TABLET
     Dates: end: 20180301
  3. LAMOTRIGINE 25 MG TABLETS [Suspect]
     Active Substance: LAMOTRIGINE
     Indication: ANXIETY
     Dosage: HALF TABLET
  4. LAMOTRIGINE 25 MG TABLETS [Suspect]
     Active Substance: LAMOTRIGINE
     Dosage: 1 AND HALF TABLET

REACTIONS (2)
  - Product use in unapproved indication [Unknown]
  - Rash [Recovered/Resolved]

NARRATIVE: CASE EVENT DATE: 20180301
